FAERS Safety Report 14569617 (Version 1)
Quarter: 2018Q1

REPORT INFORMATION
  Report Type: Spontaneous
  Country: US (occurrence: US)
  Receive Date: 20180224
  Receipt Date: 20180224
  Transmission Date: 20180509
  Serious: No
  Sender: FDA-Public Use
  Company Number: US-GLENMARK PHARMACEUTICALS-2017GMK029791

PATIENT

DRUGS (2)
  1. FLUOCINONIDE. [Suspect]
     Active Substance: FLUOCINONIDE
     Indication: WOUND
     Dosage: UNK
     Route: 065
  2. CLOTRIMAZOLE/BETAMETHASONE DIPROPIONATE CREAM USP [Suspect]
     Active Substance: BETAMETHASONE DIPROPIONATE\CLOTRIMAZOLE
     Indication: WOUND
     Dosage: UNK
     Route: 065

REACTIONS (3)
  - Drug effective for unapproved indication [Unknown]
  - Product physical consistency issue [Unknown]
  - No adverse event [Unknown]
